FAERS Safety Report 9525414 (Version 1)
Quarter: 2013Q3

REPORT INFORMATION
  Report Type: Spontaneous
  Country: US (occurrence: None)
  Receive Date: 20130913
  Receipt Date: 20130913
  Transmission Date: 20140515
  Serious: No
  Sender: FDA-Public Use
  Company Number: None

PATIENT
  Age: 69 Year
  Sex: Male
  Weight: 125.5 kg

DRUGS (1)
  1. NAPROXEN [Suspect]
     Indication: PAIN
     Dosage: 375 MG  BID  PO?~10/01/2011 THRU 10/31/2011
     Route: 048
     Dates: start: 20111001, end: 20111031

REACTIONS (2)
  - Myalgia [None]
  - Pain [None]
